FAERS Safety Report 25567990 (Version 1)
Quarter: 2025Q3

REPORT INFORMATION
  Report Type: Spontaneous
  Country: US (occurrence: US)
  Receive Date: 20250716
  Receipt Date: 20250716
  Transmission Date: 20251020
  Serious: No
  Sender: NOVO NORDISK
  Company Number: US-NOVOPROD-1368911

PATIENT
  Age: 69 Year
  Sex: Female

DRUGS (5)
  1. OZEMPIC [Suspect]
     Active Substance: SEMAGLUTIDE
     Indication: Weight decreased
     Dosage: 0.25MG ONCE WEEKLY
     Route: 058
     Dates: start: 20241125
  2. OZEMPIC [Suspect]
     Active Substance: SEMAGLUTIDE
     Indication: Glucose tolerance impaired
  3. NovoFine Plus (32G) [Concomitant]
     Indication: Weight decreased
  4. NovoFine Plus (32G) [Concomitant]
     Indication: Glucose tolerance impaired
  5. ALLERGY CARE [Concomitant]
     Indication: Hypersensitivity

REACTIONS (6)
  - Taste disorder [Recovering/Resolving]
  - Injection site erythema [Recovered/Resolved]
  - Injection site indentation [Recovered/Resolved]
  - Off label use [Unknown]
  - Wrong technique in product usage process [Unknown]
  - Product use complaint [Unknown]

NARRATIVE: CASE EVENT DATE: 20241125
